FAERS Safety Report 19597296 (Version 1)
Quarter: 2021Q3

REPORT INFORMATION
  Report Type: Spontaneous
  Country: US (occurrence: US)
  Receive Date: 20210721
  Receipt Date: 20210721
  Transmission Date: 20211014
  Serious: Yes (Hospitalization)
  Sender: FDA-Public Use
  Company Number: None

PATIENT
  Age: 54 Year
  Sex: Female

DRUGS (1)
  1. BOSENTAN 125 MG TABLET 60/BO (TEVA): [Suspect]
     Active Substance: BOSENTAN
     Indication: PULMONARY ARTERIAL HYPERTENSION
     Route: 048
     Dates: start: 20190716

REACTIONS (7)
  - Chest discomfort [None]
  - Tachypnoea [None]
  - Breath sounds abnormal [None]
  - Dyspnoea [None]
  - Tachycardia [None]
  - Treatment noncompliance [None]
  - Pulmonary hypertension [None]

NARRATIVE: CASE EVENT DATE: 20210720
